FAERS Safety Report 9644564 (Version 2)
Quarter: 2016Q1

REPORT INFORMATION
  Report Type: Report from Study
  Country: BR (occurrence: BR)
  Receive Date: 20131025
  Receipt Date: 20160308
  Transmission Date: 20160526
  Serious: Yes (Other)
  Sender: FDA-Public Use
  Company Number: BR-ROCHE-1293151

PATIENT
  Sex: Female
  Weight: 67 kg

DRUGS (3)
  1. ALENIA (BRAZIL) [Concomitant]
     Active Substance: BUDESONIDE\FORMOTEROL FUMARATE
  2. XOLAIR [Suspect]
     Active Substance: OMALIZUMAB
     Route: 058
     Dates: start: 201512
  3. XOLAIR [Suspect]
     Active Substance: OMALIZUMAB
     Indication: ASTHMA
     Dosage: 2 AMPOULES, EACH 15 DAYS
     Route: 058
     Dates: start: 20120107

REACTIONS (16)
  - Emotional disorder [Unknown]
  - Blood glucose increased [Unknown]
  - Depression [Unknown]
  - Asthma [Unknown]
  - Nervousness [Unknown]
  - Fatigue [Unknown]
  - Dyspnoea [Unknown]
  - Stress [Unknown]
  - Blood triglycerides increased [Unknown]
  - Hypersensitivity [Unknown]
  - Oral discomfort [Unknown]
  - Blood pressure increased [Unknown]
  - Crying [Unknown]
  - Wheezing [Unknown]
  - Malaise [Not Recovered/Not Resolved]
  - Secretion discharge [Unknown]
